FAERS Safety Report 16775643 (Version 1)
Quarter: 2019Q3

REPORT INFORMATION
  Report Type: Spontaneous
  Country: DE (occurrence: DE)
  Receive Date: 20190905
  Receipt Date: 20190905
  Transmission Date: 20191005
  Serious: Yes (Other)
  Sender: FDA-Public Use
  Company Number: DE-MYLANLABS-2019M1083106

PATIENT
  Age: 64 Year
  Sex: Female

DRUGS (3)
  1. PREDNISOLONE. [Suspect]
     Active Substance: PREDNISOLONE
     Indication: DERMATITIS ATOPIC
     Route: 065
  2. METHOTREXATE. [Suspect]
     Active Substance: METHOTREXATE
     Indication: CYSTOID MACULAR OEDEMA
     Dosage: DOSE: 400UG/0.1ML; 16 SUCH INJECTIONS ADMINISTERED
     Route: 050
     Dates: end: 201603
  3. CICLOSPORIN [Suspect]
     Active Substance: CYCLOSPORINE
     Indication: DERMATITIS ATOPIC
     Dosage: 2.5 MILLIGRAM/KILOGRAM
     Route: 065

REACTIONS (5)
  - Renal failure [Unknown]
  - Intraocular pressure increased [Unknown]
  - Injection site pain [Unknown]
  - IgA nephropathy [Unknown]
  - Off label use [Unknown]
